FAERS Safety Report 6505104-5 (Version None)
Quarter: 2009Q4

REPORT INFORMATION
  Report Type: 
  Country: None (occurrence: None)
  Receive Date: 20091218
  Receipt Date: 20091208
  Transmission Date: 20100525
  Serious: Yes (Other)
  Sender: FDA-Public Use
  Company Number: PHHY2009MX54556

PATIENT
  Sex: Female

DRUGS (2)
  1. DIOVAN [Suspect]
     Indication: HYPERTENSION
     Dosage: 1 DF (80 MG) DAILY
     Route: 048
     Dates: start: 20000101
  2. BUMETANIDE [Concomitant]

REACTIONS (3)
  - ARRHYTHMIA [None]
  - OEDEMA [None]
  - RESPIRATORY RATE INCREASED [None]
